FAERS Safety Report 9071894 (Version 1)
Quarter: 2013Q1

REPORT INFORMATION
  Report Type: Spontaneous
  Country: US (occurrence: US)
  Receive Date: 20130206
  Receipt Date: 20130206
  Transmission Date: 20140127
  Serious: No
  Sender: FDA-Public Use
  Company Number: US-ALLERGAN-1214149US

PATIENT
  Age: 65 Year
  Sex: Female

DRUGS (11)
  1. RESTASIS? [Suspect]
     Indication: DRY EYE
     Dosage: 2 GTT, BID
     Route: 047
     Dates: start: 20121004
  2. ST JOHN^S WORT [Suspect]
     Indication: PRODUCT USED FOR UNKNOWN INDICATION
     Dosage: UNK
     Dates: start: 20121008
  3. DILANTIN                           /00017401/ [Concomitant]
     Indication: EPILEPSY
     Dosage: 100 MG, BID
     Route: 048
  4. VALIUM                             /00017001/ [Concomitant]
     Indication: ANXIETY
     Dosage: UNK UNK, BID
     Route: 048
  5. VALIUM                             /00017001/ [Concomitant]
     Indication: DEPRESSION
  6. MAXALT                             /01406501/ [Concomitant]
     Indication: MIGRAINE
     Dosage: 10 MG, PRN
     Route: 048
  7. SYSTANE VITAMIN OMEGA 3 [Concomitant]
     Indication: LACRIMAL DISORDER
     Dosage: UNK, BID
     Route: 048
  8. LUTEIN [Concomitant]
     Indication: NUTRITIONAL SUPPLEMENTATION
     Dosage: UNK UNK, QD
     Route: 048
  9. OMEPRAZOLE [Concomitant]
     Indication: GASTROOESOPHAGEAL REFLUX DISEASE
     Dosage: 40 MG, BID
     Route: 048
  10. FIBERCON                           /00567701/ [Concomitant]
     Indication: LAXATIVE SUPPORTIVE CARE
     Dosage: UNK UNK, QD
     Route: 048
  11. CITRACEL [Concomitant]
     Indication: PRODUCT USED FOR UNKNOWN INDICATION
     Dosage: UNK, PRN

REACTIONS (5)
  - Erythema [Recovering/Resolving]
  - Urticaria [Recovering/Resolving]
  - Ocular hyperaemia [Unknown]
  - Eye irritation [Unknown]
  - Photophobia [Unknown]
